FAERS Safety Report 9261583 (Version 4)
Quarter: 2014Q1

REPORT INFORMATION
  Report Type: Spontaneous
  Country: US (occurrence: US)
  Receive Date: 20130429
  Receipt Date: 20140108
  Transmission Date: 20141002
  Serious: Yes (Other)
  Sender: FDA-Public Use
  Company Number: US-PFIZER INC-2013133468

PATIENT
  Age: 64 Year
  Sex: Female
  Weight: 77.1 kg

DRUGS (4)
  1. LYRICA [Suspect]
     Indication: BACK DISORDER
     Dosage: 100 MG, TWO TO THREE TIMES A DAY
     Dates: start: 201211
  2. LYRICA [Suspect]
     Dosage: 100 MG, TWO TO THREE TIMES A DAY
  3. HYDROCODONE W/ACETAMINOPHEN [Concomitant]
     Indication: BACK DISORDER
     Dosage: 10/325 MG, FOUR TIMES A DAY
  4. MOTRIN [Concomitant]
     Indication: PAIN
     Dosage: 30 MG, THREE TIMES A DAY

REACTIONS (2)
  - Off label use [Unknown]
  - Upper limb fracture [Unknown]
